FAERS Safety Report 9011311 (Version 1)
Quarter: 2013Q1

REPORT INFORMATION
  Report Type: Spontaneous
  Country: FR (occurrence: FR)
  Receive Date: 20130109
  Receipt Date: 20130109
  Transmission Date: 20140127
  Serious: Yes (Hospitalization, Other)
  Sender: FDA-Public Use
  Company Number: FR-ALLERGAN-1300042US

PATIENT
  Age: 58 Year
  Sex: Female

DRUGS (1)
  1. BOTULINUM TOXIN TYPE A UNK [Suspect]
     Indication: HEMIPLEGIA
     Dosage: UNK, SINGLE

REACTIONS (2)
  - Pneumothorax [Unknown]
  - Dyspnoea [Unknown]
